FAERS Safety Report 4776738-3 (Version None)
Quarter: 2005Q3

REPORT INFORMATION
  Report Type: 
  Country: None (occurrence: None)
  Receive Date: 20050922
  Receipt Date: 20050922
  Transmission Date: 20060218
  Serious: Yes (Hospitalization, Other)
  Sender: FDA-Public Use
  Company Number: None

PATIENT
  Sex: Female
  Weight: 47.9 kg

DRUGS (15)
  1. METHOTREXATE [Suspect]
     Indication: ACUTE LYMPHOCYTIC LEUKAEMIA
     Dosage: SEE IMAGE
     Route: 037
     Dates: start: 20050823, end: 20050906
  2. ONCASPAR [Suspect]
     Dosage: SEE IMAGE
     Dates: start: 20050906, end: 20050906
  3. ONCASPAR [Suspect]
     Dosage: SEE IMAGE
     Dates: start: 20050823
  4. VINCRISTINE [Suspect]
     Dosage: SEE IMAGE
     Dates: start: 20050906, end: 20050906
  5. VINCRISTINE [Suspect]
     Dosage: SEE IMAGE
     Dates: start: 20050823
  6. CYTARABINE [Suspect]
     Dosage: SEE IMAGE
     Dates: start: 20050823, end: 20050902
  7. CYCLOPHOSPHAMIDE [Suspect]
     Dosage: SEE IMAGE
     Dates: start: 20050823, end: 20050823
  8. ATIVAN [Concomitant]
  9. BACTRIM [Concomitant]
  10. DEXTROMETHORPHAN HYDROBROMIDE [Concomitant]
  11. DOCUSATE [Concomitant]
  12. FLUCONAZOLE [Concomitant]
  13. KEPPRA [Concomitant]
  14. MARINOL [Concomitant]
  15. OXYCODONE HCL [Concomitant]

REACTIONS (9)
  - ANXIETY [None]
  - DEPRESSED LEVEL OF CONSCIOUSNESS [None]
  - DISORIENTATION [None]
  - GAZE PALSY [None]
  - HEMIPARESIS [None]
  - MENTAL STATUS CHANGES [None]
  - MOVEMENT DISORDER [None]
  - SPEECH DISORDER [None]
  - VISUAL DISTURBANCE [None]
